FAERS Safety Report 11395002 (Version 6)
Quarter: 2021Q4

REPORT INFORMATION
  Report Type: Spontaneous
  Country: US (occurrence: US)
  Receive Date: 20150819
  Receipt Date: 20211221
  Transmission Date: 20220303
  Serious: Yes (Hospitalization, Other)
  Sender: FDA-Public Use
  Company Number: US-PFIZER INC-2015260417

PATIENT
  Age: 65 Year
  Sex: Female
  Weight: 92.517 kg

DRUGS (7)
  1. SUTENT [Suspect]
     Active Substance: SUNITINIB MALATE
     Indication: Metastatic renal cell carcinoma
     Dosage: 50 MG, CYCLIC (ONCE DAILY, 28 DAYS ON/ 14 DAYS OFF)
     Route: 048
     Dates: start: 20150726, end: 201605
  2. CODEINE [Concomitant]
     Active Substance: CODEINE
     Indication: Cough
     Dosage: UNK
  3. AMPICILLIN [Concomitant]
     Active Substance: AMPICILLIN
     Indication: Acne
     Dosage: UNK, ALTERNATE DAY (QOD)
  4. VITAMINS [Concomitant]
     Active Substance: VITAMINS
     Dosage: UNK
  5. VITAMIN D [Concomitant]
     Active Substance: VITAMIN D NOS
     Dosage: UNK
  6. IRON [Concomitant]
     Active Substance: IRON
     Indication: Supplementation therapy
     Dosage: UNK
  7. MIRALAX [Concomitant]
     Active Substance: POLYETHYLENE GLYCOL 3350
     Dosage: UNK

REACTIONS (11)
  - Feeling abnormal [Unknown]
  - Infection [Recovered/Resolved]
  - Cardiomyopathy [Unknown]
  - Cardiac failure congestive [Unknown]
  - Constipation [Unknown]
  - Alopecia [Unknown]
  - Peripheral swelling [Unknown]
  - Fatigue [Unknown]
  - Cough [Unknown]
  - Madarosis [Unknown]
  - Illness [Unknown]

NARRATIVE: CASE EVENT DATE: 20160501
